FAERS Safety Report 5116511-X (Version None)
Quarter: 2006Q3

REPORT INFORMATION
  Report Type: 
  Country: None (occurrence: None)
  Receive Date: 20060928
  Receipt Date: 20060920
  Transmission Date: 20061208
  Serious: Yes (Life-Threatening, Hospitalization)
  Sender: FDA-Public Use
  Company Number: PHNU2006DE03205

PATIENT
  Sex: Male

DRUGS (1)
  1. SANDOSTATIN LAR [Suspect]
     Indication: ACROMEGALY
     Route: 030

REACTIONS (9)
  - DEHYDRATION [None]
  - DIARRHOEA [None]
  - ILEUS [None]
  - MUSCLE NECROSIS [None]
  - NECROTISING FASCIITIS [None]
  - ORGAN FAILURE [None]
  - PYREXIA [None]
  - SEPSIS [None]
  - SURGERY [None]
